FAERS Safety Report 8246538-0 (Version None)
Quarter: 2012Q1

REPORT INFORMATION
  Report Type: 
  Country: None (occurrence: None)
  Receive Date: 20120330
  Receipt Date: 20120326
  Transmission Date: 20120608
  Serious: Yes (Hospitalization)
  Sender: FDA-Public Use
  Company Number: PL-BRISTOL-MYERS SQUIBB COMPANY-16387623

PATIENT
  Age: 3 Year
  Sex: Female

DRUGS (5)
  1. RITONAVIR [Suspect]
     Indication: HIV INFECTION
     Dosage: 10-23JAN12:200MG 24-28JAN12,29JAN-04FEB12:200MG,05-06FEB12
     Route: 048
     Dates: start: 20120110, end: 20120206
  2. CEFUROXIME [Concomitant]
     Dates: start: 20120123, end: 20120131
  3. NYSTATIN [Concomitant]
     Dates: start: 20120131, end: 20120205
  4. HYDROXYZINE [Concomitant]
     Dosage: 11JAN-23JAN, 26JAN-02FEB12
     Dates: start: 20120111, end: 20120202
  5. ATAZANAVIR [Suspect]
     Indication: HIV INFECTION
     Dosage: 10-23JAN12:200MG 24-28JAN12,29JAN-04FEB12:200MG,05-06FEB12
     Route: 048
     Dates: start: 20120110, end: 20120206

REACTIONS (2)
  - VOMITING [None]
  - VARICELLA [None]
